FAERS Safety Report 8073181-9 (Version None)
Quarter: 2012Q1

REPORT INFORMATION
  Report Type: 
  Country: None (occurrence: None)
  Receive Date: 20120120
  Receipt Date: 20120105
  Transmission Date: 20120608
  Serious: Yes (Other)
  Sender: FDA-Public Use
  Company Number: 1147375

PATIENT

DRUGS (3)
  1. ANESTHETICS, GENERAL [Suspect]
     Dates: start: 20111212, end: 20111212
  2. BUPIVACAINE HYDROCHLORIDE [Suspect]
     Dosage: NOT APPLICABLE
     Dates: start: 20111212, end: 20111212
  3. FENTANYL CITRATE [Suspect]
     Dates: start: 20111212, end: 20111212

REACTIONS (5)
  - SOMNOLENCE [None]
  - APGAR SCORE LOW [None]
  - DEPRESSED LEVEL OF CONSCIOUSNESS [None]
  - UNRESPONSIVE TO STIMULI [None]
  - MATERNAL DRUGS AFFECTING FOETUS [None]
